FAERS Safety Report 6144266 (Version 3)
Quarter: 2014Q3

REPORT INFORMATION
  Report Type: Spontaneous
  Country: JP (occurrence: JP)
  Receive Date: 20061010
  Receipt Date: 20140923
  Transmission Date: 20150326
  Serious: Yes (Other)
  Sender: FDA-Public Use
  Company Number: PHBS2006JP13477

PATIENT
  Age: 76 Year
  Sex: Female

DRUGS (7)
  1. GLIVEC [Suspect]
     Active Substance: IMATINIB MESYLATE
     Dosage: 100 MG PER DAY
     Route: 048
     Dates: start: 200402, end: 200402
  2. GLIVEC [Suspect]
     Active Substance: IMATINIB MESYLATE
     Dosage: 300 MG,
  3. HYDROXYUREA. [Suspect]
     Active Substance: HYDROXYUREA
     Indication: HEPATITIS C
     Dosage: 500 MG, DAY
  4. GLIVEC [Suspect]
     Active Substance: IMATINIB MESYLATE
     Dosage: 100 MG EVERY OTHER DAY
     Route: 048
     Dates: start: 200402, end: 200508
  5. GLIVEC [Suspect]
     Active Substance: IMATINIB MESYLATE
     Dosage: 100 MG, THREE TIMES A WEEK
     Route: 048
     Dates: start: 200601
  6. INTERFERON NOS [Suspect]
     Active Substance: INTERFERON
     Indication: HEPATITIS C
  7. GLIVEC [Suspect]
     Active Substance: IMATINIB MESYLATE
     Indication: CHRONIC MYELOID LEUKAEMIA
     Dosage: 400 MG, PER DAY
     Route: 048
     Dates: start: 200202, end: 200402

REACTIONS (11)
  - Normochromic normocytic anaemia [Recovering/Resolving]
  - Bone marrow failure [Unknown]
  - Nausea [Recovering/Resolving]
  - White blood cell count decreased [Unknown]
  - Oedema [Recovering/Resolving]
  - Pancytopenia [Unknown]
  - Platelet count decreased [Unknown]
  - Cytogenetic abnormality [Unknown]
  - Conjunctival disorder [Unknown]
  - Myelodysplastic syndrome [Unknown]
  - Gastrointestinal disorder [Unknown]

NARRATIVE: CASE EVENT DATE: 20040202
